FAERS Safety Report 14418509 (Version 1)
Quarter: 2018Q1

REPORT INFORMATION
  Report Type: Spontaneous
  Country: US (occurrence: US)
  Receive Date: 20180119
  Receipt Date: 20180119
  Transmission Date: 20180509
  Serious: No
  Sender: FDA-Public Use
  Company Number: None

PATIENT
  Age: 72 Year
  Weight: 58.5 kg

DRUGS (1)
  1. ESONEORAZOLE MAGNESIUM M151 [Suspect]
     Active Substance: ESOMEPRAZOLE MAGNESIUM
     Indication: GASTROOESOPHAGEAL REFLUX DISEASE
     Dosage: ?          QUANTITY:1 CAPSULE(S);?
     Route: 048
     Dates: start: 20170101, end: 20180118

REACTIONS (3)
  - Product quality issue [None]
  - Erosive oesophagitis [None]
  - Dyspepsia [None]

NARRATIVE: CASE EVENT DATE: 20180116
